FAERS Safety Report 9552673 (Version 2)
Quarter: 2013Q3

REPORT INFORMATION
  Report Type: Spontaneous
  Country: US (occurrence: US)
  Receive Date: 20130925
  Receipt Date: 20130925
  Transmission Date: 20140515
  Serious: No
  Sender: FDA-Public Use
  Company Number: US-PURDUE-USA-2012-0091476

PATIENT
  Sex: Female

DRUGS (1)
  1. MS CONTIN TABLETS [Suspect]
     Indication: PRODUCT USED FOR UNKNOWN INDICATION
     Dosage: 90 MG, QID
     Route: 048

REACTIONS (3)
  - Vomiting [Unknown]
  - Product colour issue [Unknown]
  - Drug effect increased [Unknown]
